FAERS Safety Report 8249199-X (Version None)
Quarter: 2012Q2

REPORT INFORMATION
  Report Type: 
  Country: None (occurrence: None)
  Receive Date: 20120402
  Receipt Date: 20120323
  Transmission Date: 20120825
  Serious: Yes (Hospitalization, Other)
  Sender: FDA-Public Use
  Company Number: US-BAYER-200930579NA

PATIENT
  Age: 25 Year
  Sex: Female
  Weight: 58.503 kg

DRUGS (9)
  1. YAZ [Suspect]
     Indication: CONTRACEPTION
     Dosage: UNK
     Dates: start: 20080701, end: 20080701
  2. ORTHO TRI-CYCLEN [Concomitant]
     Dosage: DRUG DISPENSED FROM PHARMACY ON 13-MAR-2006, 30-MAY-2006, 27-JUN-2006
     Dates: start: 20060313
  3. YAZ [Suspect]
     Indication: ACNE
  4. YAZ [Suspect]
     Indication: PREMENSTRUAL SYNDROME
  5. KARIVA [Concomitant]
     Dosage: UNK
     Dates: start: 20070801, end: 20080101
  6. OVCON-35 [Concomitant]
     Dosage: DISPENSED BY PHARMACY ON 20-JUL-2006
     Dates: start: 20060720
  7. VIRAL VACCINES [Concomitant]
     Dosage: GARDESIL INJECTION OR IMMUNIZATION ONE MONTH PRIOR TO THE THROMBOTIC EVENT
  8. BALZIVA-28 [Concomitant]
     Dosage: DISPENSED: 15-AUG-2006, 13-SEP-2006, 13-OCT-2006, 11-NOV-2006, 09-DEC-2006, 11-JAN-2007, 24-MAY-2007
     Dates: start: 20060815
  9. VACCINES [Concomitant]
     Dosage: GARDESIL INJECTION OR IMMUNIZATION ONE MONTH PRIOR TO THE THROMBOTIC EVENT

REACTIONS (14)
  - ATELECTASIS [None]
  - LUNG INFECTION [None]
  - PULMONARY INFARCTION [None]
  - PLEURAL EFFUSION [None]
  - MENTAL DISORDER [None]
  - TRICUSPID VALVE INCOMPETENCE [None]
  - PULMONARY VALVE INCOMPETENCE [None]
  - PLEURITIC PAIN [None]
  - CHEST PAIN [None]
  - PULMONARY EMBOLISM [None]
  - PLEURISY [None]
  - PAIN [None]
  - TACHYCARDIA [None]
  - DYSPNOEA [None]
